FAERS Safety Report 9989354 (Version 2)
Quarter: 2014Q2

REPORT INFORMATION
  Report Type: Spontaneous
  Country: US (occurrence: US)
  Receive Date: 20140310
  Receipt Date: 20140415
  Transmission Date: 20141212
  Serious: No
  Sender: FDA-Public Use
  Company Number: US-009507513-1402USA013412

PATIENT
  Age: 74 Year
  Sex: Female

DRUGS (2)
  1. DULERA [Suspect]
     Indication: CHRONIC OBSTRUCTIVE PULMONARY DISEASE
     Dosage: 2 PUFFS IN THE MORNING AND TWO IN THE EVENING
     Route: 055
     Dates: start: 20140204
  2. DULERA [Suspect]
     Dosage: 2 PUFFS ONCE A DAY
     Route: 055

REACTIONS (4)
  - Underdose [Unknown]
  - Product quality issue [Unknown]
  - Inappropriate schedule of drug administration [Unknown]
  - No adverse event [Unknown]
